FAERS Safety Report 16205074 (Version 2)
Quarter: 2019Q4

REPORT INFORMATION
  Report Type: Spontaneous
  Country: US (occurrence: US)
  Receive Date: 20190416
  Receipt Date: 20191017
  Transmission Date: 20200122
  Serious: No
  Sender: FDA-Public Use
  Company Number: US-CHILTERN-US-2019-000374

PATIENT
  Age: 62 Year
  Sex: Male

DRUGS (3)
  1. COMBIGAN [Concomitant]
     Active Substance: BRIMONIDINE TARTRATE\TIMOLOL MALEATE
     Indication: INTRAOCULAR PRESSURE INCREASED
     Dosage: ONCE A DAY IN BOTH EYES
     Route: 047
  2. RHOPRESSA [Suspect]
     Active Substance: NETARSUDIL MESYLATE
     Dosage: 1 GTT IN BOTH EYES, QD
     Route: 047
     Dates: start: 201810
  3. RHOPRESSA [Suspect]
     Active Substance: NETARSUDIL MESYLATE
     Indication: INTRAOCULAR PRESSURE INCREASED
     Dosage: 1 GTT IN BOTH EYES, QD
     Route: 047
     Dates: start: 201810, end: 201810

REACTIONS (3)
  - Eye irritation [Recovered/Resolved]
  - Pre-existing condition improved [Recovered/Resolved]
  - Eye pruritus [Recovered/Resolved]

NARRATIVE: CASE EVENT DATE: 201810
